FAERS Safety Report 12818163 (Version 4)
Quarter: 2017Q4

REPORT INFORMATION
  Report Type: Report from Study
  Country: US (occurrence: US)
  Receive Date: 20161005
  Receipt Date: 20171221
  Transmission Date: 20180320
  Serious: Yes (Hospitalization, Other)
  Sender: FDA-Public Use
  Company Number: US-ACTELION-A-US2016-143050

PATIENT
  Age: 85 Year
  Sex: Female
  Weight: 79.37 kg

DRUGS (9)
  1. SYNTHROID [Concomitant]
     Active Substance: LEVOTHYROXINE SODIUM
     Dosage: 200 MCG, QD
     Route: 048
  2. COZAAR [Concomitant]
     Active Substance: LOSARTAN POTASSIUM
     Dosage: 50 MG, QD
     Route: 048
  3. PRILOSEC [Concomitant]
     Active Substance: OMEPRAZOLE MAGNESIUM
     Dosage: 40 MG, BID
     Route: 048
  4. PERIOSTAT [Concomitant]
     Active Substance: DOXYCYCLINE HYCLATE
     Dosage: 20 MG, QD
     Route: 048
  5. METOPROLOL SUCCINATE. [Concomitant]
     Active Substance: METOPROLOL SUCCINATE
     Dosage: 12.5 MG, QD
     Route: 048
  6. SILDENAFIL CITRATE. [Concomitant]
     Active Substance: SILDENAFIL CITRATE
  7. OPSUMIT [Suspect]
     Active Substance: MACITENTAN
     Indication: PULMONARY ARTERIAL HYPERTENSION
     Dosage: 10 MG, QD
     Route: 048
     Dates: start: 20160721
  8. FORTAZ [Concomitant]
     Active Substance: CEFTAZIDIME SODIUM
     Dosage: 2 G, Q12HRS
     Route: 042
  9. KEPPRA [Concomitant]
     Active Substance: LEVETIRACETAM
     Dosage: 500 MG, BID
     Route: 048

REACTIONS (25)
  - Weight increased [Unknown]
  - Transfusion [Unknown]
  - Confusional state [Unknown]
  - Hypoxia [Recovered/Resolved]
  - Pulmonary oedema [Unknown]
  - Cardiac failure acute [Unknown]
  - Fluid overload [Unknown]
  - Urinary tract infection enterococcal [Unknown]
  - Atrial fibrillation [Recovered/Resolved]
  - Asthenia [Recovered/Resolved]
  - Pneumonia [Unknown]
  - Dizziness [Unknown]
  - Fatigue [Unknown]
  - Fluid retention [Unknown]
  - Haemoglobin decreased [Unknown]
  - Acute kidney injury [Unknown]
  - Urinary tract infection fungal [Unknown]
  - Pseudomonal sepsis [Unknown]
  - Cardiomegaly [Unknown]
  - Oedema peripheral [Unknown]
  - Internal haemorrhage [Unknown]
  - Pseudomonal bacteraemia [Unknown]
  - Blood creatinine increased [Unknown]
  - Cardiac failure congestive [Unknown]
  - Orthopnoea [Unknown]
